FAERS Safety Report 23200190 (Version 1)
Quarter: 2023Q4

REPORT INFORMATION
  Report Type: Spontaneous
  Country: US (occurrence: US)
  Receive Date: 20231118
  Receipt Date: 20231118
  Transmission Date: 20240109
  Serious: No
  Sender: FDA-Public Use
  Company Number: US-SA-SAC20231110000720

PATIENT
  Sex: Female

DRUGS (2)
  1. AUBAGIO [Suspect]
     Active Substance: TERIFLUNOMIDE
     Indication: Multiple sclerosis
     Dosage: UNK
     Route: 065
     Dates: start: 202203
  2. OCREVUS [Concomitant]
     Active Substance: OCRELIZUMAB
     Dosage: UNK

REACTIONS (14)
  - Hyperacusis [Unknown]
  - Thyroid disorder [Unknown]
  - Furuncle [Unknown]
  - Rash [Unknown]
  - Pain in extremity [Unknown]
  - Pyrexia [Unknown]
  - Fatigue [Unknown]
  - Illness [Unknown]
  - Dyspepsia [Unknown]
  - Hypersensitivity [Unknown]
  - Alopecia [Unknown]
  - Hypertension [Unknown]
  - Nausea [Unknown]
  - Diarrhoea [Unknown]
